FAERS Safety Report 7383915-4 (Version None)
Quarter: 2011Q1

REPORT INFORMATION
  Report Type: 
  Country: None (occurrence: None)
  Receive Date: 20110330
  Receipt Date: 20100328
  Transmission Date: 20110831
  Serious: Yes (Other)
  Sender: FDA-Public Use
  Company Number: AT-EISAI INC-E2020-08853-SPO-AT

PATIENT
  Sex: Female

DRUGS (5)
  1. RISPERDAL [Concomitant]
  2. ARICEPT [Suspect]
     Route: 048
     Dates: start: 20090101
  3. TOPAMAX [Concomitant]
  4. SEROQUEL [Concomitant]
  5. HALCION [Concomitant]

REACTIONS (3)
  - HALLUCINATION [None]
  - DELIRIUM [None]
  - INAPPROPRIATE AFFECT [None]
